FAERS Safety Report 21896195 (Version 2)
Quarter: 2023Q1

REPORT INFORMATION
  Report Type: Spontaneous
  Country: US (occurrence: US)
  Receive Date: 20230123
  Receipt Date: 20230123
  Transmission Date: 20230418
  Serious: No
  Sender: FDA-Public Use
  Company Number: US-BRISTOL-MYERS SQUIBB COMPANY-2023-009712

PATIENT
  Age: 52 Year
  Sex: Female

DRUGS (2)
  1. LENALIDOMIDE [Suspect]
     Active Substance: LENALIDOMIDE
     Indication: Diffuse large B-cell lymphoma
  2. TAFASITAMAB [Suspect]
     Active Substance: TAFASITAMAB
     Indication: Product used for unknown indication

REACTIONS (2)
  - Off label use [Unknown]
  - Diarrhoea [Unknown]
